FAERS Safety Report 8570572-4 (Version None)
Quarter: 2012Q3

REPORT INFORMATION
  Report Type: 
  Country: None (occurrence: None)
  Receive Date: 20120804
  Receipt Date: 20120725
  Transmission Date: 20120928
  Serious: No
  Sender: FDA-Public Use
  Company Number: US-009507513-1207USA011522

PATIENT

DRUGS (3)
  1. SUBOXONE [Concomitant]
     Indication: DRUG DEPENDENCE
  2. SAPHRIS [Suspect]
     Indication: BORDERLINE PERSONALITY DISORDER
  3. SAPHRIS [Suspect]
     Indication: POST-TRAUMATIC STRESS DISORDER

REACTIONS (2)
  - WEIGHT INCREASED [None]
  - OEDEMA [None]
